FAERS Safety Report 5139500-8 (Version None)
Quarter: 2006Q4

REPORT INFORMATION
  Report Type: 
  Country: None (occurrence: None)
  Receive Date: 20061030
  Receipt Date: 20060705
  Transmission Date: 20070319
  Serious: Yes (Other)
  Sender: FDA-Public Use
  Company Number: CA-BOEHRINGER INGELHEIM GMBH, GERMANY-2006-CN-00347CN

PATIENT
  Sex: Male

DRUGS (7)
  1. TIPRANAVIR + RITONAVIR CO-ADMIN [Suspect]
     Indication: ACQUIRED IMMUNODEFICIENCY SYNDROME
     Dosage: 500MG TPV BID / 200MG RTV BID
     Dates: start: 20060501
  2. VIDEX EC [Concomitant]
  3. LAMIVUDINE [Concomitant]
     Dosage: 150 MG BID
  4. NORVIR [Concomitant]
     Dosage: 200 MG BID
  5. VFEND [Concomitant]
  6. DARAPRIM/DAPSONE [Concomitant]
  7. LEUCOVORIN CALCIUM [Concomitant]

REACTIONS (1)
  - ACNE [None]
